FAERS Safety Report 10764452 (Version 2)
Quarter: 2015Q1

REPORT INFORMATION
  Report Type: Spontaneous
  Country: US (occurrence: US)
  Receive Date: 20150205
  Receipt Date: 20150318
  Transmission Date: 20150721
  Serious: Yes (Hospitalization, Disabling, Other)
  Sender: FDA-Public Use
  Company Number: US-ASTRAZENECA-2015SE10216

PATIENT
  Age: 25420 Day
  Sex: Female
  Weight: 68 kg

DRUGS (8)
  1. POTASSIUM CHLORIDE. [Concomitant]
     Active Substance: POTASSIUM CHLORIDE
     Indication: BLOOD POTASSIUM ABNORMAL
     Dates: start: 20130301, end: 20140424
  2. HYZAAR [Concomitant]
     Active Substance: HYDROCHLOROTHIAZIDE\LOSARTAN POTASSIUM
     Indication: HYPERTENSION
     Dates: start: 20130820, end: 20140902
  3. CRESTOR [Suspect]
     Active Substance: ROSUVASTATIN CALCIUM
     Indication: BLOOD CHOLESTEROL
     Route: 048
     Dates: start: 2004, end: 201410
  4. BLOOD PRESSURE MEDICATION [Concomitant]
     Active Substance: UNSPECIFIED INGREDIENT
     Indication: BLOOD PRESSURE ABNORMAL
     Route: 048
     Dates: start: 2009
  5. OMEPRAZOLE. [Suspect]
     Active Substance: OMEPRAZOLE
     Indication: GASTROOESOPHAGEAL REFLUX DISEASE
     Route: 048
     Dates: start: 2012, end: 20141205
  6. NEXIUM [Suspect]
     Active Substance: ESOMEPRAZOLE MAGNESIUM
     Indication: GASTROOESOPHAGEAL REFLUX DISEASE
     Route: 048
  7. LASIX [Concomitant]
     Active Substance: FUROSEMIDE
     Indication: OEDEMA
     Route: 048
     Dates: start: 20130301, end: 20140424
  8. LEXAPRO [Concomitant]
     Active Substance: ESCITALOPRAM OXALATE
     Indication: ANXIETY

REACTIONS (12)
  - Hypophagia [Unknown]
  - Renal failure [Not Recovered/Not Resolved]
  - Weight decreased [Unknown]
  - Dizziness [Unknown]
  - Tongue discolouration [Unknown]
  - Dehydration [Unknown]
  - Blood pressure abnormal [Unknown]
  - Hypertension [Unknown]
  - Oral discomfort [Recovered/Resolved]
  - Oral discomfort [Unknown]
  - Vomiting [Unknown]
  - Oral pain [Unknown]

NARRATIVE: CASE EVENT DATE: 20121217
